FAERS Safety Report 18415101 (Version 1)
Quarter: 2020Q4

REPORT INFORMATION
  Report Type: Spontaneous
  Country: US (occurrence: US)
  Receive Date: 20201022
  Receipt Date: 20201022
  Transmission Date: 20210114
  Serious: No
  Sender: FDA-Public Use
  Company Number: US-BRACCO-2020US03048

PATIENT
  Sex: Male

DRUGS (1)
  1. VOLUMEN [Suspect]
     Active Substance: BARIUM SULFATE
     Indication: COMPUTERISED TOMOGRAM INTESTINE
     Dosage: 200 ML, SINGLE
     Route: 048
     Dates: start: 20200722, end: 20200722

REACTIONS (2)
  - No adverse event [Unknown]
  - Expired product administered [Unknown]

NARRATIVE: CASE EVENT DATE: 20200722
